FAERS Safety Report 24734492 (Version 1)
Quarter: 2024Q4

REPORT INFORMATION
  Report Type: Spontaneous
  Country: CA (occurrence: CA)
  Receive Date: 20241214
  Receipt Date: 20241214
  Transmission Date: 20250114
  Serious: Yes (Other)
  Sender: CELLTRION
  Company Number: CA-CELLTRION INC.-2023CA025203

PATIENT

DRUGS (13)
  1. INFLECTRA [Suspect]
     Active Substance: INFLIXIMAB-DYYB
     Indication: Psoriatic arthropathy
     Dosage: 350 MG, INDUCTION DOSES AT WEEK 0, 2 AND 6, THEN EVERY 8 WEEKS
     Route: 042
     Dates: start: 20231227, end: 20231227
  2. INFLECTRA [Suspect]
     Active Substance: INFLIXIMAB-DYYB
     Dosage: 350 MG, WEEK 2 (INDUCTION DOSES AT WEEK 0, 2 AND 6, THEN EVERY 8 WEEKS)
     Route: 042
     Dates: start: 20240110, end: 20240110
  3. INFLECTRA [Suspect]
     Active Substance: INFLIXIMAB-DYYB
     Dosage: 350 MG, WEEK 6 (INDUCTION DOSES AT WEEK 0, 2 AND 6, THEN EVERY 8 WEEKS)
     Route: 042
     Dates: start: 20240208, end: 20240208
  4. INFLECTRA [Suspect]
     Active Substance: INFLIXIMAB-DYYB
     Dosage: 350 MG, AFTER 7 WEEKS AND 6 DAYS (PRESCRIBED EVERY 6 WEEKS)
     Route: 042
     Dates: start: 20240403, end: 20240403
  5. INFLECTRA [Suspect]
     Active Substance: INFLIXIMAB-DYYB
     Dosage: 350 MG, EVERY 6 WEEKS
     Route: 042
     Dates: start: 20240515, end: 20240515
  6. INFLECTRA [Suspect]
     Active Substance: INFLIXIMAB-DYYB
     Dosage: 350 MG, EVERY 6 WEEKS
     Route: 042
     Dates: start: 20240807
  7. INFLECTRA [Suspect]
     Active Substance: INFLIXIMAB-DYYB
     Dosage: 350 MG, EVERY 6 WEEKS
     Route: 042
     Dates: start: 20240918
  8. INFLECTRA [Suspect]
     Active Substance: INFLIXIMAB-DYYB
     Dosage: 350 MG, EVERY 5 WEEK
     Route: 042
     Dates: start: 2024
  9. INFLECTRA [Suspect]
     Active Substance: INFLIXIMAB-DYYB
     Dosage: 350 MG, AFTER 6 WEEKS AND 1 DAY (PRESCRIBED EVERY 5 WEEKS)
     Route: 042
     Dates: start: 20241030, end: 20241030
  10. INFLECTRA [Suspect]
     Active Substance: INFLIXIMAB-DYYB
     Dosage: 350 MG, EVERY 5 WEEKS
     Route: 042
     Dates: start: 20241204
  11. DICLOFENAC [Concomitant]
     Active Substance: DICLOFENAC
     Dosage: 1 DF
  12. ENBREL [Concomitant]
     Active Substance: ETANERCEPT
     Dosage: 1 DF
  13. PREDNISONE [Concomitant]
     Active Substance: PREDNISONE
     Dosage: 1 DF

REACTIONS (10)
  - Hypertension [Not Recovered/Not Resolved]
  - Therapeutic response shortened [Unknown]
  - Condition aggravated [Unknown]
  - Heart rate decreased [Recovered/Resolved]
  - Ear infection [Unknown]
  - Heart rate increased [Recovered/Resolved]
  - Off label use [Unknown]
  - Off label use [Unknown]
  - Intentional product use issue [Unknown]
  - Inappropriate schedule of product administration [Unknown]

NARRATIVE: CASE EVENT DATE: 20231227
